FAERS Safety Report 10912503 (Version 1)
Quarter: 2015Q1

REPORT INFORMATION
  Report Type: Spontaneous
  Country: US (occurrence: None)
  Receive Date: 20150310
  Receipt Date: 20150310
  Transmission Date: 20150721
  Serious: Yes (Other)
  Sender: FDA-Public Use
  Company Number: None

PATIENT
  Age: 12 Year
  Sex: Male
  Weight: 45.81 kg

DRUGS (3)
  1. METHYLPHENIDATE [Suspect]
     Active Substance: METHYLPHENIDATE
     Indication: ATTENTION DEFICIT/HYPERACTIVITY DISORDER
     Route: 048
     Dates: start: 20150201, end: 20150228
  2. FISH OIL [Concomitant]
     Active Substance: FISH OIL
  3. METHYLPHENIDATE [Suspect]
     Active Substance: METHYLPHENIDATE
     Indication: ATTENTION DEFICIT/HYPERACTIVITY DISORDER
     Route: 048
     Dates: start: 20150201, end: 20150228

REACTIONS (11)
  - Disturbance in attention [None]
  - Headache [None]
  - Speech disorder [None]
  - Product quality issue [None]
  - Restlessness [None]
  - Product substitution issue [None]
  - Abdominal pain upper [None]
  - Emotional disorder [None]
  - Anxiety [None]
  - Panic attack [None]
  - Dyskinesia [None]

NARRATIVE: CASE EVENT DATE: 20150201
